FAERS Safety Report 7369555-1 (Version None)
Quarter: 2011Q1

REPORT INFORMATION
  Report Type: 
  Country: None (occurrence: None)
  Receive Date: 20110317
  Receipt Date: 20110317
  Transmission Date: 20110831
  Serious: Yes (Hospitalization, Other)
  Sender: FDA-Public Use
  Company Number: None

PATIENT

DRUGS (1)
  1. INVEGA [Suspect]
     Indication: SCHIZOPHRENIA
     Dates: start: 20100101, end: 20110101

REACTIONS (3)
  - ERECTILE DYSFUNCTION [None]
  - THROMBOSIS [None]
  - VASOCONSTRICTION [None]
